FAERS Safety Report 16285534 (Version 3)
Quarter: 2021Q1

REPORT INFORMATION
  Report Type: Report from Study
  Country: DE (occurrence: DE)
  Receive Date: 20190508
  Receipt Date: 20210201
  Transmission Date: 20210419
  Serious: Yes (Hospitalization)
  Sender: FDA-Public Use
  Company Number: DE-JNJFOC-20190440260

PATIENT
  Age: 75 Year
  Sex: Male
  Weight: 71 kg

DRUGS (7)
  1. DAIVONEX [Concomitant]
     Active Substance: CALCIPOTRIENE
     Indication: PSORIASIS
     Route: 061
     Dates: start: 201701
  2. SALICYLIC ACID IN VASELINE CETOMACROGOL [Concomitant]
     Indication: PSORIASIS
     Route: 061
     Dates: start: 201902
  3. ENSTILAR [Concomitant]
     Active Substance: BETAMETHASONE DIPROPIONATE\CALCIPOTRIENE HYDRATE
     Indication: PSORIATIC ARTHROPATHY
  4. TREMFYA [Suspect]
     Active Substance: GUSELKUMAB
     Indication: PSORIASIS
     Route: 058
     Dates: start: 20190208
  5. ENSTILAR [Concomitant]
     Active Substance: BETAMETHASONE DIPROPIONATE\CALCIPOTRIENE HYDRATE
     Indication: PSORIASIS
     Route: 061
     Dates: start: 201701
  6. SALICYLIC ACID IN VASELINE CETOMACROGOL [Concomitant]
     Indication: PSORIATIC ARTHROPATHY
  7. DAIVONEX [Concomitant]
     Active Substance: CALCIPOTRIENE
     Indication: PSORIATIC ARTHROPATHY

REACTIONS (2)
  - Anal cancer [Not Recovered/Not Resolved]
  - Prostate cancer [Not Recovered/Not Resolved]

NARRATIVE: CASE EVENT DATE: 20190322
